FAERS Safety Report 21964401 (Version 1)
Quarter: 2023Q1

REPORT INFORMATION
  Report Type: Spontaneous
  Country: US (occurrence: None)
  Receive Date: 20230206
  Receipt Date: 20230206
  Transmission Date: 20230417
  Serious: Yes (Other)
  Sender: FDA-Public Use
  Company Number: None

PATIENT
  Age: 31 Year
  Sex: Female

DRUGS (3)
  1. COPAXONE [Suspect]
     Active Substance: GLATIRAMER ACETATE
     Indication: Demyelination
     Dosage: OTHER FREQUENCY : TIW;?
     Route: 058
     Dates: start: 20210330, end: 20230116
  2. BOTOX [Concomitant]
     Active Substance: ONABOTULINUMTOXINA
  3. AIMOVIG [Concomitant]
     Active Substance: ERENUMAB-AOOE

REACTIONS (6)
  - Immediate post-injection reaction [None]
  - Swelling face [None]
  - Lip swelling [None]
  - Therapy cessation [None]
  - Skin discolouration [None]
  - Speech disorder [None]

NARRATIVE: CASE EVENT DATE: 20230116
